FAERS Safety Report 7982727-8 (Version None)
Quarter: 2011Q4

REPORT INFORMATION
  Report Type: 
  Country: None (occurrence: None)
  Receive Date: 20111215
  Receipt Date: 20111201
  Transmission Date: 20120403
  Serious: Yes (Other)
  Sender: FDA-Public Use
  Company Number: US-ENDO PHARMACEUTICALS INC.-PERC20110105

PATIENT
  Sex: Female
  Weight: 88.53 kg

DRUGS (6)
  1. BUTRANS [Suspect]
     Indication: ARTHRALGIA
     Dosage: UNKNOWN
     Route: 062
     Dates: start: 20110820, end: 20110909
  2. TIZANIDINE HCL [Suspect]
     Indication: MYALGIA
     Dosage: UNKNOWN
     Route: 048
     Dates: start: 20100621
  3. BUTRANS [Suspect]
     Dosage: UNKNOWN
     Route: 062
  4. PERCOCET [Suspect]
     Indication: PAIN
     Dosage: 5/325 MG
     Route: 048
  5. BUTRANS [Suspect]
     Dosage: UNKNOWN
     Route: 062
     Dates: start: 20110418, end: 20110610
  6. CLONAZEPAM [Suspect]
     Indication: POOR QUALITY SLEEP
     Dosage: UNKNOWN
     Route: 048
     Dates: start: 20101004

REACTIONS (3)
  - FLUID RETENTION [None]
  - SLEEP APNOEA SYNDROME [None]
  - OEDEMA [None]
